FAERS Safety Report 21928696 (Version 2)
Quarter: 2023Q1

REPORT INFORMATION
  Report Type: Spontaneous
  Country: US (occurrence: US)
  Receive Date: 20230130
  Receipt Date: 20230228
  Transmission Date: 20230418
  Serious: No
  Sender: FDA-Public Use
  Company Number: US-HETERO-HET2023US00165

PATIENT
  Age: 66 Year
  Sex: Female
  Weight: 6.803 kg

DRUGS (3)
  1. ROSUVASTATIN [Suspect]
     Active Substance: ROSUVASTATIN
     Indication: Arteriosclerosis
     Dosage: 5 MG, ONCE A DAY AT NIGHT
     Route: 048
     Dates: start: 20230116, end: 20230117
  2. ROSUVASTATIN [Suspect]
     Active Substance: ROSUVASTATIN
     Dosage: 5 MG, ONCE A DAY AT NIGHT
     Route: 048
     Dates: start: 20230118, end: 20230119
  3. AMLODIPINE [Concomitant]
     Active Substance: AMLODIPINE BESYLATE
     Indication: Hypertension
     Dosage: 5 MG
     Route: 065

REACTIONS (5)
  - Fall [Recovered/Resolved]
  - Back injury [Recovered/Resolved]
  - Myalgia [Not Recovered/Not Resolved]
  - Arthralgia [Not Recovered/Not Resolved]
  - Initial insomnia [Not Recovered/Not Resolved]

NARRATIVE: CASE EVENT DATE: 20230117
